FAERS Safety Report 8219732-2 (Version None)
Quarter: 2012Q1

REPORT INFORMATION
  Report Type: 
  Country: None (occurrence: None)
  Receive Date: 20120319
  Receipt Date: 20120307
  Transmission Date: 20120608
  Serious: Yes (Hospitalization)
  Sender: FDA-Public Use
  Company Number: ES-ELI_LILLY_AND_COMPANY-ES201203002506

PATIENT
  Sex: Female
  Weight: 72 kg

DRUGS (9)
  1. ACFOL [Concomitant]
     Dosage: 5 MG, QD
     Route: 048
  2. FUROSEMIDE [Concomitant]
     Dosage: 0.5 DF, QD
     Route: 048
  3. OMEPRAZOLE [Concomitant]
     Dosage: 1 DF, QD
     Route: 048
  4. OXYGEN [Concomitant]
     Dosage: UNK, QD
     Route: 055
  5. FORTEO [Suspect]
     Indication: OSTEOPOROSIS
     Dosage: 20 UG, QD
     Route: 058
     Dates: start: 20110508
  6. ATROVENT [Concomitant]
     Indication: RESPIRATORY FAILURE
     Dosage: 1 DF, QD
     Route: 055
  7. UROLOSIN [Concomitant]
     Dosage: 0.4 MG, QD
     Route: 048
  8. DOLOSTOP                           /00020001/ [Concomitant]
     Dosage: 650 MG, QD
     Route: 048
  9. THEO-DUR [Concomitant]
     Dosage: 200 MG, QD
     Route: 048

REACTIONS (1)
  - RESPIRATORY FAILURE [None]
